FAERS Safety Report 7602262-6 (Version None)
Quarter: 2011Q3

REPORT INFORMATION
  Report Type: 
  Country: None (occurrence: None)
  Receive Date: 20110711
  Receipt Date: 20110708
  Transmission Date: 20111222
  Serious: Yes (Congenital Anomaly)
  Sender: FDA-Public Use
  Company Number: US-GILEAD-2011-0041164

PATIENT
  Sex: Male
  Weight: 2.255 kg

DRUGS (6)
  1. RITONAVIR [Concomitant]
     Route: 064
     Dates: start: 20101216
  2. REYATAZ [Concomitant]
     Route: 064
     Dates: start: 20090806, end: 20101215
  3. RETROVIR [Concomitant]
     Route: 064
     Dates: start: 20110609, end: 20110609
  4. TRUVADA [Suspect]
     Route: 064
     Dates: start: 20090806, end: 20101215
  5. NORVIR [Concomitant]
     Route: 064
     Dates: start: 20090806, end: 20101215
  6. COMBIVIR [Concomitant]
     Route: 064
     Dates: start: 20101216

REACTIONS (1)
  - CONGENITAL CENTRAL NERVOUS SYSTEM ANOMALY [None]
